FAERS Safety Report 19419258 (Version 1)
Quarter: 2021Q2

REPORT INFORMATION
  Report Type: Spontaneous
  Country: US (occurrence: US)
  Receive Date: 20210615
  Receipt Date: 20210615
  Transmission Date: 20210717
  Serious: Yes (Death, Hospitalization, Other)
  Sender: FDA-Public Use
  Company Number: US-PFIZER INC-2021642081

PATIENT
  Age: 87 Year
  Sex: Female
  Weight: 65.77 kg

DRUGS (1)
  1. PREMARIN [Suspect]
     Active Substance: ESTROGENS, CONJUGATED
     Indication: VAGINAL PESSARY INSERTION
     Dosage: UNK, 2X/WEEK (0.5 OR A FULL GRAM)

REACTIONS (5)
  - Off label use [Unknown]
  - Vaginal haemorrhage [Unknown]
  - Decreased appetite [Unknown]
  - Dementia Alzheimer^s type [Fatal]
  - Sepsis [Unknown]

NARRATIVE: CASE EVENT DATE: 2015
